FAERS Safety Report 6117175-9 (Version None)
Quarter: 2009Q1

REPORT INFORMATION
  Report Type: 
  Country: None (occurrence: None)
  Receive Date: 20090314
  Receipt Date: 20090105
  Transmission Date: 20090719
  Serious: No
  Sender: FDA-Public Use
  Company Number: US-ABBOTT-09P-163-0496097-00

PATIENT
  Sex: Male

DRUGS (1)
  1. HUMIRA [Suspect]
     Indication: PSORIASIS
     Route: 058
     Dates: start: 20080717, end: 20081203

REACTIONS (5)
  - FOLLICULITIS [None]
  - HYPERSENSITIVITY [None]
  - PAIN [None]
  - SCLERODERMA [None]
  - SKIN NODULE [None]
